FAERS Safety Report 10557404 (Version 1)
Quarter: 2014Q4

REPORT INFORMATION
  Report Type: Spontaneous
  Country: US (occurrence: None)
  Receive Date: 20141030
  Receipt Date: 20141030
  Transmission Date: 20150529
  Serious: No
  Sender: FDA-Public Use
  Company Number: None

PATIENT
  Sex: Female
  Weight: 69.85 kg

DRUGS (1)
  1. NEXPLANON [Suspect]
     Active Substance: ETONOGESTREL
     Dosage: ONE ROD EVERY 3 YEARS GIVEN INTO/UNDER THE SKIN
     Route: 058

REACTIONS (6)
  - Hypoaesthesia [None]
  - Paraesthesia [None]
  - Libido decreased [None]
  - Mood altered [None]
  - Menstruation irregular [None]
  - Alopecia [None]
